FAERS Safety Report 12890985 (Version 2)
Quarter: 2017Q1

REPORT INFORMATION
  Report Type: Spontaneous
  Country: IT (occurrence: IT)
  Receive Date: 20161027
  Receipt Date: 20170119
  Transmission Date: 20170428
  Serious: Yes (Life-Threatening, Other)
  Sender: FDA-Public Use
  Company Number: IT-GILEAD-2016-0239903

PATIENT
  Age: 78 Year
  Sex: Female

DRUGS (2)
  1. RIBAVIRIN. [Suspect]
     Active Substance: RIBAVIRIN
     Indication: HEPATITIS C
     Dosage: 400 MG, QD
     Route: 048
     Dates: start: 20150124, end: 20150710
  2. SOFOSBUVIR [Suspect]
     Active Substance: SOFOSBUVIR
     Indication: HEPATITIS C
     Dosage: 400 MG, QD
     Route: 048
     Dates: start: 20150124, end: 20150710

REACTIONS (2)
  - Hepatic cirrhosis [Recovered/Resolved with Sequelae]
  - Hepatocellular carcinoma [Recovered/Resolved with Sequelae]

NARRATIVE: CASE EVENT DATE: 20151223
